FAERS Safety Report 17207173 (Version 2)
Quarter: 2020Q2

REPORT INFORMATION
  Report Type: Report from Study
  Country: US (occurrence: US)
  Receive Date: 20191227
  Receipt Date: 20200415
  Transmission Date: 20200713
  Serious: No
  Sender: FDA-Public Use
  Company Number: US-ASTRAZENECA-2019SF85268

PATIENT
  Sex: Female

DRUGS (14)
  1. SYNAGIS [Suspect]
     Active Substance: PALIVIZUMAB
     Indication: VENTRICULAR SEPTAL DEFECT
     Dosage: 100MG/ML MONTHLY
     Route: 030
     Dates: start: 20181205
  2. FUROSEMIDE. [Concomitant]
     Active Substance: FUROSEMIDE
     Dosage: 10.0MG/ML UNKNOWN
  3. MULTIVITAMIN DRO/IRON [Concomitant]
  4. POLYETH GLYC [Concomitant]
     Active Substance: POLYETHYLENE GLYCOLS
  5. ALBUTEROL. [Concomitant]
     Active Substance: ALBUTEROL
     Dosage: 1.25MG UNKNOWN
  6. FAMOTIDINE. [Concomitant]
     Active Substance: FAMOTIDINE
  7. GABAPENTIN. [Concomitant]
     Active Substance: GABAPENTIN
  8. BUDESONIDE. [Suspect]
     Active Substance: BUDESONIDE
     Dosage: 0.5MG UNKNOWN
     Route: 055
  9. ENALAPRIL [Concomitant]
     Active Substance: ENALAPRIL
     Dosage: 5.0MG UNKNOWN
  10. NAFCILLIN [Concomitant]
     Active Substance: NAFCILLIN SODIUM
     Dosage: 1.0G UNKNOWN
  11. CYPROHEPTAD [Concomitant]
  12. PUROSEMIDE [Concomitant]
     Dosage: 10.0MG/ML UNKNOWN
  13. PREDNISOLONE. [Concomitant]
     Active Substance: PREDNISOLONE
  14. OSELTAMIVIR [Concomitant]
     Active Substance: OSELTAMIVIR
     Dosage: 6.0MG/ML UNKNOWN

REACTIONS (3)
  - Pyrexia [Not Recovered/Not Resolved]
  - Cough [Not Recovered/Not Resolved]
  - Respiratory disorder [Not Recovered/Not Resolved]
